FAERS Safety Report 7248345-4 (Version None)
Quarter: 2011Q1

REPORT INFORMATION
  Report Type: 
  Country: None (occurrence: None)
  Receive Date: 20110127
  Receipt Date: 20110119
  Transmission Date: 20110831
  Serious: Yes (Other)
  Sender: FDA-Public Use
  Company Number: PHHY2011PL04848

PATIENT

DRUGS (1)
  1. MYFORTIC [Suspect]

REACTIONS (2)
  - HYPOTONIA [None]
  - URINARY TRACT INFECTION [None]
